FAERS Safety Report 4358489-2 (Version None)
Quarter: 2004Q2

REPORT INFORMATION
  Report Type: 
  Country: None (occurrence: None)
  Receive Date: 20040511
  Receipt Date: 20040429
  Transmission Date: 20050107
  Serious: Yes (Hospitalization, Other)
  Sender: FDA-Public Use
  Company Number: 205862

PATIENT
  Age: 57 Year
  Sex: Female

DRUGS (8)
  1. MABTHERA (RITUXIMAB) CONC FOR SOLUTION FOR INFUSION [Suspect]
     Indication: RHEUMATOID ARTHRITIS
     Dosage: INTRAVENOUS
     Route: 042
     Dates: start: 20040127, end: 20040209
  2. PREDNISOLONE [Suspect]
     Indication: RHEUMATOID ARTHRITIS
  3. ALVEDON (ACETAMINOPHEN) [Concomitant]
  4. CONFORTID (INDOMETHACIN) [Concomitant]
  5. ZOLOFT [Concomitant]
  6. NAPROXEN [Concomitant]
  7. LOSEC (OMEPRAZOLE) [Concomitant]
  8. KLIOGEST (ESTRADIOL, NORETHINDROME ACETATE) [Concomitant]

REACTIONS (7)
  - ABDOMINAL PAIN [None]
  - ABDOMINAL PAIN LOWER [None]
  - ABSCESS INTESTINAL [None]
  - DIVERTICULAR PERFORATION [None]
  - FLATULENCE [None]
  - POST PROCEDURAL HAEMORRHAGE [None]
  - VAGINITIS BACTERIAL [None]
